FAERS Safety Report 15618244 (Version 2)
Quarter: 2018Q4

REPORT INFORMATION
  Report Type: Spontaneous
  Country: FR (occurrence: FR)
  Receive Date: 20181114
  Receipt Date: 20181210
  Transmission Date: 20190205
  Serious: Yes (Hospitalization)
  Sender: FDA-Public Use
  Company Number: FR-ARBOR PHARMACEUTICALS, LLC-FR-2018ARB001145

PATIENT
  Age: 75 Year
  Sex: Male

DRUGS (9)
  1. XTANDI [Suspect]
     Active Substance: ENZALUTAMIDE
     Indication: PROSTATE CANCER METASTATIC
     Dosage: 120 MG, 1 D
     Route: 048
     Dates: start: 201708
  2. TRAMADOL. [Suspect]
     Active Substance: TRAMADOL
     Indication: GAIT DISTURBANCE
     Dosage: UNK
     Route: 048
     Dates: end: 20180217
  3. INNOHEP [Suspect]
     Active Substance: TINZAPARIN SODIUM
     Indication: PULMONARY EMBOLISM
     Dosage: 1 DOSAGE FORMS, 1 D
     Route: 058
     Dates: start: 201709
  4. SEROPLEX [Suspect]
     Active Substance: ESCITALOPRAM OXALATE
     Indication: DEPRESSION
     Dosage: 10 MG, 1 D
     Route: 048
     Dates: end: 20180217
  5. ESOMEPRAZOLE. [Suspect]
     Active Substance: ESOMEPRAZOLE MAGNESIUM
     Indication: PRODUCT USED FOR UNKNOWN INDICATION
     Dosage: UNK
     Route: 048
     Dates: end: 20180217
  6. NOVONORM [Suspect]
     Active Substance: REPAGLINIDE
     Indication: DIABETES MELLITUS
     Dosage: UNK
     Route: 048
     Dates: end: 20180217
  7. TRIPTODUR [Suspect]
     Active Substance: TRIPTORELIN
     Indication: PROSTATE CANCER METASTATIC
     Dosage: 1 DF, CYCLICAL
     Route: 030
  8. LIPANTHYL [Suspect]
     Active Substance: FENOFIBRATE
     Indication: DYSLIPIDAEMIA
     Dosage: 145 MG, 1 D
     Route: 048
     Dates: end: 20180217
  9. AMLOR [Suspect]
     Active Substance: AMLODIPINE BESYLATE
     Indication: HYPERTENSION
     Dosage: UNK
     Route: 048
     Dates: end: 20180217

REACTIONS (2)
  - Cholestasis [Not Recovered/Not Resolved]
  - Prescribed underdose [Unknown]

NARRATIVE: CASE EVENT DATE: 201708
